FAERS Safety Report 14742098 (Version 1)
Quarter: 2018Q2

REPORT INFORMATION
  Report Type: Spontaneous
  Country: US (occurrence: US)
  Receive Date: 20180410
  Receipt Date: 20180410
  Transmission Date: 20180711
  Serious: No
  Sender: FDA-Public Use
  Company Number: PHEH2018US013767

PATIENT
  Sex: Female

DRUGS (1)
  1. METHOTREXATE INJECTION [Suspect]
     Active Substance: METHOTREXATE
     Indication: PRODUCT USED FOR UNKNOWN INDICATION
     Dosage: UNK UNK, QW
     Route: 065

REACTIONS (2)
  - Musculoskeletal stiffness [Unknown]
  - Pain [Unknown]
